FAERS Safety Report 15425091 (Version 1)
Quarter: 2018Q4

REPORT INFORMATION
  Report Type: Spontaneous
  Country: US (occurrence: US)
  Receive Date: 20180925
  Receipt Date: 20180925
  Transmission Date: 20190204
  Serious: No
  Sender: FDA-Public Use
  Company Number: US-THERAPEUTICSMD-2018TMD00021

PATIENT
  Age: 69 Year
  Sex: Female
  Weight: 82.09 kg

DRUGS (4)
  1. XANAX [Concomitant]
     Active Substance: ALPRAZOLAM
     Dosage: 0.5 MG, AS NEEDED
  2. PROBIOTIC PBA [Concomitant]
     Dosage: UNK
     Dates: start: 2006
  3. TRAMADOL. [Concomitant]
     Active Substance: TRAMADOL
     Dosage: 25 MG, 1X/DAY AS NEEDED
     Dates: start: 2015
  4. IMVEXXY [Suspect]
     Active Substance: ESTRADIOL
     Indication: VULVOVAGINAL DRYNESS
     Dosage: 10 ?G, 1X/DAY
     Route: 067
     Dates: start: 20180720, end: 20180720

REACTIONS (2)
  - Off label use [Recovered/Resolved]
  - Faeces discoloured [Not Recovered/Not Resolved]

NARRATIVE: CASE EVENT DATE: 20180720
